FAERS Safety Report 5012625-3 (Version None)
Quarter: 2006Q2

REPORT INFORMATION
  Report Type: 
  Country: None (occurrence: None)
  Receive Date: 20060411
  Receipt Date: 20060227
  Transmission Date: 20061013
  Serious: No
  Sender: FDA-Public Use
  Company Number: 2006S1000045

PATIENT
  Sex: 0

DRUGS (7)
  1. CUBICIN [Suspect]
     Indication: ABDOMINAL INFECTION
  2. CUBICIN [Suspect]
     Indication: BREAST PROSTHESIS IMPLANTATION
  3. CUBICIN [Suspect]
     Indication: DEVICE RELATED INFECTION
  4. CUBICIN [Suspect]
     Indication: POSTOPERATIVE WOUND INFECTION
  5. VANCOMYCIN [Concomitant]
  6. GENTAMICIN [Concomitant]
  7. CEFTAZIDIME [Concomitant]

REACTIONS (3)
  - BALANCE DISORDER [None]
  - DRUG TOXICITY [None]
  - VESTIBULAR DISORDER [None]
